FAERS Safety Report 24570780 (Version 1)
Quarter: 2024Q4

REPORT INFORMATION
  Report Type: Spontaneous
  Country: ES (occurrence: ES)
  Receive Date: 20241101
  Receipt Date: 20241101
  Transmission Date: 20250114
  Serious: Yes (Other)
  Sender: UCB
  Company Number: None

PATIENT
  Sex: Female

DRUGS (3)
  1. BRIVARACETAM [Interacting]
     Active Substance: BRIVARACETAM
     Indication: Product used for unknown indication
     Dosage: UNK UNK, ONE INTERVAL
     Route: 048
     Dates: start: 202409, end: 202409
  2. CARBAMAZEPINE [Interacting]
     Active Substance: CARBAMAZEPINE
     Indication: Product used for unknown indication
     Dosage: UNK UNK, ONE INTERVAL
     Route: 048
     Dates: start: 202409, end: 202409
  3. PREGABALIN [Interacting]
     Active Substance: PREGABALIN
     Indication: Product used for unknown indication
     Dosage: 25 MILLIGRAM, ONE TIME DOSE
     Route: 048
     Dates: start: 202409, end: 202409

REACTIONS (4)
  - Somnolence [Recovering/Resolving]
  - Hypotension [Recovering/Resolving]
  - Wrong product administered [Unknown]
  - Drug interaction [Unknown]

NARRATIVE: CASE EVENT DATE: 20240901
